FAERS Safety Report 4868153-9 (Version None)
Quarter: 2005Q4

REPORT INFORMATION
  Report Type: 
  Country: None (occurrence: None)
  Receive Date: 20051227
  Receipt Date: 20051216
  Transmission Date: 20060501
  Serious: Yes (Death)
  Sender: FDA-Public Use
  Company Number: US-JNJFOC-20051103778

PATIENT
  Age: 65 Year
  Sex: Female
  Weight: 61.2356 kg

DRUGS (11)
  1. RISPERDAL [Suspect]
     Indication: DRUG USE FOR UNKNOWN INDICATION
     Dosage: 0.5 MG, 3 IN 1 DAY
  2. COUMADIN [Concomitant]
  3. IMDUR [Concomitant]
  4. PREVACID [Concomitant]
  5. REGLAN [Concomitant]
  6. PREDNISONE [Concomitant]
  7. EXELON [Concomitant]
  8. ATIVAN [Concomitant]
  9. NEPHROVITE (NEPHRO-VITE RX) [Concomitant]
  10. LABETALOL HCL [Concomitant]
  11. CATAPRESS PATCH (CLONIDINE) [Concomitant]

REACTIONS (3)
  - CORONARY ARTERY DISEASE [None]
  - GRAFT THROMBOSIS [None]
  - INTRACARDIAC THROMBUS [None]
